FAERS Safety Report 6167489-1 (Version None)
Quarter: 2009Q2

REPORT INFORMATION
  Report Type: 
  Country: None (occurrence: None)
  Receive Date: 20090424
  Receipt Date: 20090318
  Transmission Date: 20091009
  Serious: Yes (Hospitalization)
  Sender: FDA-Public Use
  Company Number: TR-ELI_LILLY_AND_COMPANY-TR200904005293

PATIENT
  Age: 72 Year
  Sex: Female

DRUGS (11)
  1. HUMALOG [Suspect]
     Indication: DIABETES MELLITUS
     Dosage: 85 IU, DAILY (1/D)
     Route: 058
     Dates: start: 20070301
  2. DESAL [Concomitant]
  3. ATORVASTATIN CALCIUM [Concomitant]
  4. ASPIRIN [Concomitant]
  5. DILATREND [Concomitant]
  6. PIYELOSEPTYL [Concomitant]
  7. DIOVAN HCT [Concomitant]
  8. AMLODIPINE BESYLATE [Concomitant]
  9. DIGOXIN [Concomitant]
  10. ISORDIL [Concomitant]
  11. ATARAX [Concomitant]

REACTIONS (4)
  - CARDIAC DISORDER [None]
  - FUNGAL INFECTION [None]
  - HYPERTENSION [None]
  - URINARY TRACT INFECTION [None]
